FAERS Safety Report 16057699 (Version 1)
Quarter: 2019Q1

REPORT INFORMATION
  Report Type: Spontaneous
  Country: US (occurrence: US)
  Receive Date: 20190311
  Receipt Date: 20190311
  Transmission Date: 20190418
  Serious: Yes (Other)
  Sender: FDA-Public Use
  Company Number: US-ABBVIE-19S-163-2692313-00

PATIENT
  Sex: Female
  Weight: 56.25 kg

DRUGS (5)
  1. ADVIL [Suspect]
     Active Substance: IBUPROFEN
     Indication: MYALGIA
     Route: 048
  2. ADVIL [Suspect]
     Active Substance: IBUPROFEN
     Indication: MIGRAINE
  3. SYNTHROID [Suspect]
     Active Substance: LEVOTHYROXINE SODIUM
     Indication: HYPOTHYROIDISM
     Dosage: SHE SPLITS A TABLET AND TAKES HALF OF IT BEFORE BREAKFAST AND THE OTHER HALF BEFORE LUNCH.
     Route: 048
  4. ADVIL [Suspect]
     Active Substance: IBUPROFEN
     Indication: FIBROMYALGIA
     Route: 048
  5. CHEMO MEDICATION [Concomitant]
     Indication: BREAST CANCER

REACTIONS (8)
  - Mania [Unknown]
  - Migraine [Unknown]
  - Breast cancer [Unknown]
  - Fibromyalgia [Unknown]
  - Visual impairment [Unknown]
  - Dysgeusia [Unknown]
  - Wrong technique in product usage process [Unknown]
  - Headache [Unknown]

NARRATIVE: CASE EVENT DATE: 1980
